FAERS Safety Report 6046189-2 (Version None)
Quarter: 2009Q1

REPORT INFORMATION
  Report Type: 
  Country: None (occurrence: None)
  Receive Date: 20090121
  Receipt Date: 20090121
  Transmission Date: 20090719
  Serious: Yes (Hospitalization)
  Sender: FDA-Public Use
  Company Number: None

PATIENT
  Age: 72 Year
  Sex: Male

DRUGS (2)
  1. PENICILLIN [Suspect]
     Indication: BACTERAEMIA
     Dosage: 20 PER HOUR IV
     Route: 042
     Dates: start: 20081230, end: 20090107
  2. PENICILLIN [Suspect]
     Indication: SEPSIS
     Dosage: 20 PER HOUR IV
     Route: 042
     Dates: start: 20081230, end: 20090107

REACTIONS (2)
  - THROMBOCYTOPENIA [None]
  - TUBULOINTERSTITIAL NEPHRITIS [None]
